FAERS Safety Report 16755329 (Version 1)
Quarter: 2019Q3

REPORT INFORMATION
  Report Type: Spontaneous
  Country: US (occurrence: US)
  Receive Date: 20190829
  Receipt Date: 20190829
  Transmission Date: 20191005
  Serious: Yes (Death)
  Sender: FDA-Public Use
  Company Number: US-BAYER-2019-156304

PATIENT
  Age: 39 Year
  Sex: Male
  Weight: 85.26 kg

DRUGS (2)
  1. MULTIVITAMINS [VITAMINS NOS] [Concomitant]
     Active Substance: VITAMINS
  2. STIVARGA [Suspect]
     Active Substance: REGORAFENIB
     Indication: ANAL CANCER
     Dosage: 160 MG, QD FOR 21 DAYS
     Route: 048
     Dates: start: 20170912

REACTIONS (3)
  - Death [Fatal]
  - Product use in unapproved indication [None]
  - Off label use [None]

NARRATIVE: CASE EVENT DATE: 20170912
